FAERS Safety Report 13019463 (Version 1)
Quarter: 2016Q4

REPORT INFORMATION
  Report Type: Spontaneous
  Country: US (occurrence: US)
  Receive Date: 20161212
  Receipt Date: 20161212
  Transmission Date: 20170207
  Serious: No
  Sender: FDA-Public Use
  Company Number: US-ROCHE-1757361

PATIENT
  Age: 15 Year
  Sex: Female

DRUGS (3)
  1. ORENCIA [Concomitant]
     Active Substance: ABATACEPT
  2. ACTEMRA [Suspect]
     Active Substance: TOCILIZUMAB
     Indication: PRODUCT USED FOR UNKNOWN INDICATION
     Route: 065
  3. ILARIS [Concomitant]
     Active Substance: CANAKINUMAB

REACTIONS (7)
  - Arthralgia [Unknown]
  - Weight decreased [Unknown]
  - Laboratory test abnormal [Unknown]
  - Nausea [Unknown]
  - Gait disturbance [Unknown]
  - Blood iron abnormal [Unknown]
  - Decreased appetite [Unknown]
